FAERS Safety Report 21490759 (Version 2)
Quarter: 2022Q4

REPORT INFORMATION
  Report Type: Report from Study
  Country: US (occurrence: None)
  Receive Date: 20221021
  Receipt Date: 20221108
  Transmission Date: 20230113
  Serious: Yes (Hospitalization, Other)
  Sender: FDA-Public Use
  Company Number: US-ROCHE-3203432

PATIENT
  Age: 58 Year
  Sex: Male
  Weight: 98.9 kg

DRUGS (3)
  1. ATEZOLIZUMAB [Suspect]
     Active Substance: ATEZOLIZUMAB
     Indication: Small cell lung cancer
     Route: 041
     Dates: start: 20220221, end: 20220221
  2. CISPLATIN [Suspect]
     Active Substance: CISPLATIN
     Indication: Small cell lung cancer
     Dosage: LAS TADMINISTERED DATE 21/FEB/2022
     Route: 065
     Dates: start: 20220221
  3. ETOPOSIDE [Suspect]
     Active Substance: ETOPOSIDE
     Indication: Small cell lung cancer
     Dosage: RECEIVED 230 MG ON DAYS 1,2 AND 3 FOR A CUMULATIVE TOTAL OF 690MG THIS CYCLE
     Route: 065
     Dates: start: 20220221, end: 20220223

REACTIONS (5)
  - Hypotension [Recovered/Resolved]
  - Anaemia [Unknown]
  - Anorectal infection [Unknown]
  - Oesophageal ulcer [Unknown]
  - Syncope [Unknown]

NARRATIVE: CASE EVENT DATE: 20220304
